FAERS Safety Report 8372734-8 (Version None)
Quarter: 2012Q2

REPORT INFORMATION
  Report Type: 
  Country: None (occurrence: None)
  Receive Date: 20120521
  Receipt Date: 20120509
  Transmission Date: 20120825
  Serious: Yes (Other)
  Sender: FDA-Public Use
  Company Number: JP-SANOFI-AVENTIS-2012SA034958

PATIENT
  Age: 78 Year
  Sex: Female

DRUGS (14)
  1. ASPIRIN [Concomitant]
  2. ISONIAZID [Suspect]
     Route: 065
  3. PREDNISOLONE [Suspect]
     Dosage: DOSE TAPERED. TOTAL 2 MONTHS.
     Route: 065
  4. PREDNISOLONE [Suspect]
     Dosage: DOSE TAPERED. TOTAL 2 MONTHS.
     Route: 065
  5. ISONIAZID [Suspect]
     Route: 065
  6. PYRAZINAMIDE [Suspect]
     Route: 065
  7. PREDNISOLONE [Suspect]
     Route: 065
  8. RIFAMPICIN [Suspect]
     Route: 065
  9. PREDNISOLONE [Suspect]
     Route: 065
  10. ETHAMBUTOL HYDROCHLORIDE [Suspect]
     Route: 065
  11. PYRAZINAMIDE [Suspect]
     Route: 065
  12. ARGATROBAN [Concomitant]
  13. ETHAMBUTOL HYDROCHLORIDE [Suspect]
     Route: 065
  14. RIFAMPICIN [Suspect]
     Route: 065

REACTIONS (2)
  - CEREBRAL INFARCTION [None]
  - DIZZINESS [None]
